FAERS Safety Report 25776662 (Version 1)
Quarter: 2025Q3

REPORT INFORMATION
  Report Type: Spontaneous
  Country: US (occurrence: US)
  Receive Date: 20250909
  Receipt Date: 20250909
  Transmission Date: 20251020
  Serious: No
  Sender: DOMPE FARMACEUTICI
  Company Number: US-FARMAPROD-202409-3141

PATIENT
  Sex: Male

DRUGS (13)
  1. OXERVATE [Suspect]
     Active Substance: CENEGERMIN-BKBJ
     Indication: Neurotrophic keratopathy
     Route: 047
     Dates: start: 20240812
  2. OXERVATE [Suspect]
     Active Substance: CENEGERMIN-BKBJ
  3. ZYRTEC-D [Concomitant]
     Active Substance: CETIRIZINE HYDROCHLORIDE\PSEUDOEPHEDRINE HYDROCHLORIDE
  4. VITAMIN B12 [Concomitant]
     Active Substance: CYANOCOBALAMIN
  5. ASPIRIN [Concomitant]
     Active Substance: ASPIRIN
  6. REFRESH CLASSIC [Concomitant]
     Active Substance: POLYVINYL ALCOHOL\POVIDONE
  7. METOPROLOL SUCCINATE [Concomitant]
     Active Substance: METOPROLOL SUCCINATE
  8. OFLOXACIN [Concomitant]
     Active Substance: OFLOXACIN
  9. MIEBO [Concomitant]
     Active Substance: PERFLUOROHEXYLOCTANE
  10. XIIDRA [Concomitant]
     Active Substance: LIFITEGRAST
  11. FERROUS SULFATE [Concomitant]
     Active Substance: FERROUS SULFATE
  12. TUMS [Concomitant]
     Active Substance: CALCIUM CARBONATE
  13. STOOL SOFTENER (DOCUSATE) [Concomitant]
     Active Substance: DOCUSATE

REACTIONS (2)
  - Lacrimation increased [Not Recovered/Not Resolved]
  - Rhinorrhoea [Not Recovered/Not Resolved]
